FAERS Safety Report 6644801-8 (Version None)
Quarter: 2010Q1

REPORT INFORMATION
  Report Type: 
  Country: None (occurrence: None)
  Receive Date: 20100322
  Receipt Date: 20100310
  Transmission Date: 20100710
  Serious: Yes (Death)
  Sender: FDA-Public Use
  Company Number: JP-PFIZER INC-2010019422

PATIENT
  Age: 83 Year
  Sex: Female
  Weight: 36.5 kg

DRUGS (2)
  1. ZYVOX [Suspect]
     Indication: PNEUMONIA STAPHYLOCOCCAL
     Dosage: 600 MG, 2X/DAY
     Route: 042
     Dates: start: 20100107, end: 20100110
  2. ROCEPHIN [Concomitant]
     Indication: BRONCHOPNEUMONIA
     Dates: start: 20100102, end: 20100106

REACTIONS (5)
  - ANAEMIA [None]
  - HEPATIC FUNCTION ABNORMAL [None]
  - HYPERKALAEMIA [None]
  - MULTI-ORGAN FAILURE [None]
  - RENAL IMPAIRMENT [None]
